FAERS Safety Report 24455233 (Version 2)
Quarter: 2024Q4

REPORT INFORMATION
  Report Type: Spontaneous
  Country: CN (occurrence: CN)
  Receive Date: 20241017
  Receipt Date: 20241018
  Transmission Date: 20250115
  Serious: No
  Sender: ROCHE
  Company Number: CN-ROCHE-3488691

PATIENT
  Age: 39 Year
  Sex: Male

DRUGS (19)
  1. RITUXIMAB [Suspect]
     Active Substance: RITUXIMAB
     Indication: Follicular lymphoma
     Route: 042
  2. BENDAMUSTINE [Suspect]
     Active Substance: BENDAMUSTINE
     Indication: Follicular lymphoma
     Route: 065
  3. IBRUTINIB [Concomitant]
     Active Substance: IBRUTINIB
     Route: 065
  4. PIRARUBICIN [Concomitant]
     Active Substance: PIRARUBICIN
     Route: 065
  5. CYCLOPHOSPHAMIDE [Concomitant]
     Active Substance: CYCLOPHOSPHAMIDE
     Route: 065
  6. VINCRISTINE [Concomitant]
     Active Substance: VINCRISTINE
     Route: 065
  7. PREDNISONE [Concomitant]
     Active Substance: PREDNISONE
     Route: 065
  8. BENDAMUSTINE [Concomitant]
     Active Substance: BENDAMUSTINE
     Route: 065
  9. DEXAMETHASONE [Concomitant]
     Active Substance: DEXAMETHASONE
     Route: 065
  10. CISPLATIN [Concomitant]
     Active Substance: CISPLATIN
     Route: 065
  11. CYTARABINE [Concomitant]
     Active Substance: CYTARABINE
     Route: 065
  12. CYTARABINE [Concomitant]
     Active Substance: CYTARABINE
     Route: 065
  13. IFOSFAMIDE [Concomitant]
     Active Substance: IFOSFAMIDE
     Route: 065
  14. CARBOPLATIN [Concomitant]
     Active Substance: CARBOPLATIN
     Route: 065
  15. ETOPOSIDE [Concomitant]
     Active Substance: ETOPOSIDE
     Route: 065
  16. ETOPOSIDE [Concomitant]
     Active Substance: ETOPOSIDE
     Route: 065
  17. CARMUSTINE [Concomitant]
     Active Substance: CARMUSTINE
     Route: 065
  18. MELPHALAN [Concomitant]
     Active Substance: MELPHALAN
     Route: 065
  19. TOCILIZUMAB [Concomitant]
     Active Substance: TOCILIZUMAB
     Route: 065

REACTIONS (1)
  - Disease progression [Unknown]
